FAERS Safety Report 7262207-8 (Version None)
Quarter: 2011Q1

REPORT INFORMATION
  Report Type: 
  Country: None (occurrence: None)
  Receive Date: 20110119
  Receipt Date: 20110104
  Transmission Date: 20110831
  Serious: Yes (Hospitalization, Other)
  Sender: FDA-Public Use
  Company Number: JPI-P-013394

PATIENT
  Age: 62 Year
  Sex: Female
  Weight: 53.978 kg

DRUGS (1)
  1. XYREM [Suspect]
     Indication: SLEEP DISORDER
     Dosage: (UNKNOWN), ORAL
     Route: 048
     Dates: start: 20070501

REACTIONS (4)
  - WEIGHT INCREASED [None]
  - SCIATIC NERVE INJURY [None]
  - INTERVERTEBRAL DISC INJURY [None]
  - FALL [None]
